FAERS Safety Report 9647515 (Version 3)
Quarter: 2014Q1

REPORT INFORMATION
  Report Type: Spontaneous
  Country: US (occurrence: US)
  Receive Date: 20131028
  Receipt Date: 20140305
  Transmission Date: 20141002
  Serious: Yes (Hospitalization)
  Sender: FDA-Public Use
  Company Number: US-BIOGENIDEC-2013BI102099

PATIENT
  Age: 72 Year
  Sex: Female

DRUGS (29)
  1. TECFIDERA [Suspect]
     Indication: MULTIPLE SCLEROSIS
     Route: 048
     Dates: start: 20130701, end: 20130817
  2. TECFIDERA [Suspect]
     Indication: MULTIPLE SCLEROSIS
     Route: 048
     Dates: start: 20131030
  3. HUMALIN 70/30 [Concomitant]
  4. SINGULAIR [Concomitant]
     Dates: start: 20110901
  5. COZAAR [Concomitant]
     Route: 048
     Dates: start: 20110813
  6. LASIX [Concomitant]
     Route: 048
     Dates: start: 20110901
  7. ZOLOFT [Concomitant]
     Route: 048
     Dates: start: 20110729
  8. TRIMETHOPRIM [Concomitant]
  9. NOVOLOG 70/30 [Concomitant]
     Route: 058
     Dates: start: 20110906
  10. CYCLOBENZAPRINE [Concomitant]
     Route: 048
     Dates: start: 20130109
  11. LEVOTHYROXINE [Concomitant]
     Route: 048
     Dates: start: 20111108
  12. WARFARIN SODIUM [Concomitant]
     Route: 048
     Dates: start: 20110813
  13. BAYER ASPIRIN [Concomitant]
  14. CVS FISH OIL [Concomitant]
     Route: 048
  15. CVS GLUCOSAMINE- CHONDR [Concomitant]
  16. PROVIGIL [Concomitant]
     Indication: FATIGUE
     Dates: start: 20130130
  17. ASPIRIN [Concomitant]
     Route: 048
  18. CARVEDILOL [Concomitant]
     Route: 048
     Dates: start: 20110711
  19. HYDROCODONE-ACETAMINOPHEN [Concomitant]
     Route: 048
     Dates: start: 20120427
  20. HYDROCODONE-HOMATROPINE [Concomitant]
     Route: 048
     Dates: start: 20111216
  21. ISOSORBIDE MONONITRATE [Concomitant]
     Route: 048
     Dates: start: 20110812
  22. KLOR-CON M10 [Concomitant]
  23. METRONIDAZOLE [Concomitant]
     Route: 048
     Dates: start: 20120405
  24. NOVOFINE 30 [Concomitant]
     Dates: start: 20110720
  25. SIMVASTATIN [Concomitant]
     Route: 048
     Dates: start: 20110831
  26. TAMSULOSIN [Concomitant]
     Route: 048
     Dates: start: 20120427
  27. SLOW FE [Concomitant]
     Route: 048
  28. VITAMIN C [Concomitant]
     Route: 048
  29. VITAMIN D3 [Concomitant]
     Route: 048

REACTIONS (7)
  - Dehydration [Unknown]
  - Cardiac failure congestive [Unknown]
  - Renal failure acute [Unknown]
  - Gastrointestinal disorder [Unknown]
  - Oedema [Unknown]
  - Underdose [Recovered/Resolved]
  - Diarrhoea [Unknown]
